FAERS Safety Report 9679957 (Version 2)
Quarter: 2014Q1

REPORT INFORMATION
  Report Type: Spontaneous
  Country: JP (occurrence: JP)
  Receive Date: 20131110
  Receipt Date: 20140204
  Transmission Date: 20141002
  Serious: Yes (Other)
  Sender: FDA-Public Use
  Company Number: PHHY2013JP127034

PATIENT
  Age: 66 Year
  Sex: Female

DRUGS (1)
  1. TEGRETOL [Suspect]
     Dosage: 400 MG, DAILY
     Route: 048
     Dates: start: 20131101

REACTIONS (1)
  - Blood creatine phosphokinase increased [Unknown]
